FAERS Safety Report 22002460 (Version 61)
Quarter: 2025Q4

REPORT INFORMATION
  Report Type: Report from Study
  Country: CO (occurrence: CO)
  Receive Date: 20230217
  Receipt Date: 20251031
  Transmission Date: 20260118
  Serious: Yes (Other)
  Sender: TAKEDA
  Company Number: CO-TAKEDA-2023TUS016897

PATIENT
  Age: 30 Year
  Sex: Female
  Weight: 49 kg

DRUGS (10)
  1. ICATIBANT [Suspect]
     Active Substance: ICATIBANT ACETATE
     Indication: Hereditary angioedema
     Dosage: UNK
  2. ICATIBANT [Suspect]
     Active Substance: ICATIBANT ACETATE
     Dosage: UNK
  3. ICATIBANT [Suspect]
     Active Substance: ICATIBANT ACETATE
     Dosage: 30 MILLIGRAM
  4. ICATIBANT [Suspect]
     Active Substance: ICATIBANT ACETATE
     Dosage: 30 MILLIGRAM/3 ML, Q6HR
  5. CINRYZE [Suspect]
     Active Substance: HUMAN C1-ESTERASE INHIBITOR
     Indication: Hereditary angioedema
     Dosage: UNK
  6. CINRYZE [Suspect]
     Active Substance: HUMAN C1-ESTERASE INHIBITOR
  7. CINRYZE [Suspect]
     Active Substance: HUMAN C1-ESTERASE INHIBITOR
  8. AMOXICILLIN [Suspect]
     Active Substance: AMOXICILLIN
     Indication: Product used for unknown indication
     Dosage: UNK
  9. COVID-19 VACCINE NOS [Suspect]
     Active Substance: COVID-19 VACCINE
     Indication: COVID-19 immunisation
     Dosage: UNK
  10. CLONAZEPAM [Concomitant]
     Active Substance: CLONAZEPAM
     Dosage: UNK UNK, QD

REACTIONS (70)
  - Optic neuritis [Not Recovered/Not Resolved]
  - Poisoning [Unknown]
  - Hypothermia [Recovering/Resolving]
  - Mastitis fungal [Unknown]
  - Syncope [Unknown]
  - Systemic lupus erythematosus [Unknown]
  - Malaise [Recovered/Resolved]
  - Stress [Unknown]
  - Joint injury [Unknown]
  - Fear of death [Unknown]
  - Poor quality sleep [Recovered/Resolved]
  - Decreased activity [Recovered/Resolved]
  - Mood altered [Unknown]
  - Discomfort [Unknown]
  - Anxiety [Unknown]
  - Insomnia [Unknown]
  - Oropharyngeal pain [Not Recovered/Not Resolved]
  - Myalgia [Recovered/Resolved]
  - Feeling abnormal [Unknown]
  - Pain [Not Recovered/Not Resolved]
  - Viral infection [Not Recovered/Not Resolved]
  - Discouragement [Not Recovered/Not Resolved]
  - Heart rate increased [Unknown]
  - Pelvic pain [Unknown]
  - Weight increased [Unknown]
  - Depressed mood [Unknown]
  - Blood pressure decreased [Recovered/Resolved]
  - Abdominal discomfort [Unknown]
  - Vaginal haemorrhage [Recovered/Resolved]
  - Chills [Unknown]
  - Fibromyalgia [Unknown]
  - Anaemia [Unknown]
  - Protein total decreased [Unknown]
  - Somnolence [Unknown]
  - Tachycardia [Recovering/Resolving]
  - Acne [Recovering/Resolving]
  - Product use issue [Unknown]
  - Maternal exposure during breast feeding [Unknown]
  - Panic attack [Unknown]
  - Pigmentation disorder [Recovering/Resolving]
  - Frustration tolerance decreased [Unknown]
  - Hyperhidrosis [Recovering/Resolving]
  - Amnesia [Recovering/Resolving]
  - Crying [Unknown]
  - Tonsillitis bacterial [Unknown]
  - Depression [Unknown]
  - Lactation disorder [Unknown]
  - Productive cough [Unknown]
  - Nervousness [Unknown]
  - Asthenia [Unknown]
  - Back pain [Unknown]
  - Fatigue [Unknown]
  - Neuralgia [Recovered/Resolved]
  - Gait disturbance [Recovered/Resolved]
  - Weight decreased [Unknown]
  - Pregnancy [Recovered/Resolved]
  - Scar [Unknown]
  - Alopecia [Unknown]
  - Face injury [Recovered/Resolved]
  - Hereditary angioedema [Recovered/Resolved]
  - Abdominal pain [Unknown]
  - Urinary tract infection [Recovering/Resolving]
  - Burning sensation [Unknown]
  - Pyrexia [Recovering/Resolving]
  - Nausea [Unknown]
  - Headache [Recovered/Resolved]
  - Urticaria [Not Recovered/Not Resolved]
  - Pruritus [Unknown]
  - Insurance issue [Unknown]
  - Product availability issue [Unknown]

NARRATIVE: CASE EVENT DATE: 20230213
